FAERS Safety Report 22208740 (Version 1)
Quarter: 2023Q2

REPORT INFORMATION
  Report Type: Other
  Country: US (occurrence: US)
  Receive Date: 20230413
  Receipt Date: 20230413
  Transmission Date: 20230722
  Serious: No
  Sender: FDA-Public Use
  Company Number: US-TRAVERE-2023TVT00026

PATIENT
  Age: 4 Year
  Sex: Male

DRUGS (3)
  1. CHOLBAM [Suspect]
     Active Substance: CHOLIC ACID
     Indication: Congenital anomaly
     Route: 048
     Dates: start: 20200321
  2. FERROUS SULFATE [Concomitant]
     Active Substance: FERROUS SULFATE
  3. VITAMIN D [Concomitant]
     Active Substance: VITAMIN D NOS

REACTIONS (1)
  - Conjunctivitis [Unknown]
